FAERS Safety Report 8244830-7 (Version None)
Quarter: 2012Q1

REPORT INFORMATION
  Report Type: 
  Country: None (occurrence: None)
  Receive Date: 20120329
  Receipt Date: 20110531
  Transmission Date: 20120608
  Serious: No
  Sender: FDA-Public Use
  Company Number: US-MYLANLABS-2011S1011412

PATIENT
  Age: 47 Year
  Sex: Male

DRUGS (4)
  1. FENTANYL-100 [Suspect]
     Dosage: Q48H
     Route: 062
     Dates: start: 20110401
  2. LAMICTAL [Concomitant]
  3. TRILEPTAL [Concomitant]
  4. FENTANYL-100 [Suspect]
     Indication: PAIN
     Dosage: CHANGED Q48H.
     Route: 062
     Dates: start: 20110301, end: 20110401

REACTIONS (2)
  - FATIGUE [None]
  - FEELING COLD [None]
